FAERS Safety Report 7718899-X (Version None)
Quarter: 2011Q3

REPORT INFORMATION
  Report Type: 
  Country: None (occurrence: None)
  Receive Date: 20110830
  Receipt Date: 20110826
  Transmission Date: 20111222
  Serious: Yes (Death)
  Sender: FDA-Public Use
  Company Number: US-SANOFI-AVENTIS-2011SA055191

PATIENT

DRUGS (2)
  1. PLAVIX [Suspect]
     Route: 065
  2. COUMADIN [Suspect]
     Route: 065

REACTIONS (1)
  - HEAD INJURY [None]
